FAERS Safety Report 14933263 (Version 6)
Quarter: 2018Q3

REPORT INFORMATION
  Report Type: Spontaneous
  Country: US (occurrence: US)
  Receive Date: 20180524
  Receipt Date: 20180719
  Transmission Date: 20181010
  Serious: No
  Sender: FDA-Public Use
  Company Number: US-PFIZER INC-2018207503

PATIENT
  Age: 73 Year
  Sex: Female

DRUGS (1)
  1. BESPONSA [Suspect]
     Active Substance: INOTUZUMAB OZOGAMICIN
     Indication: ACUTE LYMPHOCYTIC LEUKAEMIA
     Dosage: 1 MG, WEEKLY
     Dates: start: 20180502, end: 20180527

REACTIONS (8)
  - Feeling abnormal [Unknown]
  - Limb injury [Unknown]
  - Abdominal pain upper [Unknown]
  - Mouth ulceration [Unknown]
  - Diverticulum [Unknown]
  - White blood cell count increased [Unknown]
  - Dizziness [Unknown]
  - Asthenia [Unknown]

NARRATIVE: CASE EVENT DATE: 2018
